FAERS Safety Report 25640062 (Version 1)
Quarter: 2025Q3

REPORT INFORMATION
  Report Type: Spontaneous
  Country: EU (occurrence: EU)
  Receive Date: 20250804
  Receipt Date: 20250804
  Transmission Date: 20251020
  Serious: Yes (Hospitalization)
  Sender: ELI LILLY AND COMPANY
  Company Number: None

PATIENT
  Weight: 95 kg

DRUGS (1)
  1. MOUNJARO [Suspect]
     Active Substance: TIRZEPATIDE
     Indication: Weight control
     Dosage: 1 DOSAGE FORM, WEEKLY (1/W)
     Route: 065
     Dates: start: 20250311, end: 20250328

REACTIONS (1)
  - Appendicitis [Recovered/Resolved]
